FAERS Safety Report 6464430-9 (Version None)
Quarter: 2009Q4

REPORT INFORMATION
  Report Type: 
  Country: None (occurrence: None)
  Receive Date: 20091118
  Receipt Date: 20090526
  Transmission Date: 20100525
  Serious: Yes (Hospitalization)
  Sender: FDA-Public Use
  Company Number: 2008BI015856

PATIENT
  Age: 67 Year
  Sex: Female
  Weight: 70.3075 kg

DRUGS (1)
  1. TYSABRI [Suspect]
     Indication: MULTIPLE SCLEROSIS
     Dosage: 300 MG;QM;IV
     Route: 042
     Dates: start: 20080421

REACTIONS (6)
  - BACK DISORDER [None]
  - BACK PAIN [None]
  - COORDINATION ABNORMAL [None]
  - GAIT DISTURBANCE [None]
  - INTESTINAL OBSTRUCTION [None]
  - SPEECH DISORDER [None]
